FAERS Safety Report 7986144-6 (Version None)
Quarter: 2011Q4

REPORT INFORMATION
  Report Type: 
  Country: None (occurrence: None)
  Receive Date: 20111216
  Receipt Date: 20111214
  Transmission Date: 20120403
  Serious: Yes (Hospitalization)
  Sender: FDA-Public Use
  Company Number: JP-PFIZER INC-2011303829

PATIENT
  Age: 55 Year
  Sex: Male

DRUGS (2)
  1. ALPRAZOLAM [Suspect]
     Indication: DEPRESSION
     Dosage: 0.8 MG TABLET AT 10 TO 20 TABLETS DAILY
     Route: 048
  2. ANAFRANIL [Concomitant]
     Route: 042

REACTIONS (2)
  - DRUG ABUSE [None]
  - BURNING MOUTH SYNDROME [None]
